FAERS Safety Report 22291570 (Version 1)
Quarter: 2023Q2

REPORT INFORMATION
  Report Type: Spontaneous
  Country: US (occurrence: US)
  Receive Date: 20230507
  Receipt Date: 20230507
  Transmission Date: 20230721
  Serious: No
  Sender: FDA-Public Use
  Company Number: US-ABBVIE-4751134

PATIENT
  Age: 29 Year
  Sex: Female
  Weight: 113.39 kg

DRUGS (1)
  1. SKYRIZI [Suspect]
     Active Substance: RISANKIZUMAB-RZAA
     Indication: Crohn^s disease
     Route: 058
     Dates: start: 20230429

REACTIONS (1)
  - Injection site papule [Recovered/Resolved]

NARRATIVE: CASE EVENT DATE: 20230429
